FAERS Safety Report 22590230 (Version 1)
Quarter: 2023Q2

REPORT INFORMATION
  Report Type: Spontaneous
  Country: None (occurrence: US)
  Receive Date: 20230612
  Receipt Date: 20230612
  Transmission Date: 20230721
  Serious: No
  Sender: FDA-Public Use
  Company Number: US-Appco Pharma LLC-2142592

PATIENT
  Age: 40 Year
  Sex: Female

DRUGS (2)
  1. MODAFINIL [Suspect]
     Active Substance: MODAFINIL
     Indication: Narcolepsy
     Route: 065
  2. VITAMINS [Concomitant]
     Active Substance: VITAMINS
     Route: 065

REACTIONS (4)
  - Headache [Unknown]
  - Malaise [Unknown]
  - Brain fog [Unknown]
  - Fatigue [Unknown]

NARRATIVE: CASE EVENT DATE: 20230522
